FAERS Safety Report 8760658 (Version 1)
Quarter: 2012Q4

REPORT INFORMATION
  Report Type: 
  Country: US (occurrence: US)
  Receive Date: 20120830
  Receipt Date: 20120830
  Transmission Date: 20130627
  Serious: Yes (Hospitalization)
  Sender: FDA-Public Use
  Company Number: US-SHIRE-ALL1-2012-04077

PATIENT
  Age: 7 Year
  Sex: Male

DRUGS (3)
  1. INTUNIV [Suspect]
     Indication: ATTENTION DEFICIT/HYPERACTIVITY DISORDER
     Dosage: 2 mg, 1x/day:qd
     Route: 048
     Dates: start: 20120814, end: 201208
  2. INTUNIV [Suspect]
     Dosage: 1 mg, 1x/day:qd
     Route: 048
     Dates: start: 201111, end: 201111
  3. INTUNIV [Suspect]
     Dosage: 2 mg, 1x/day:qd
     Route: 048
     Dates: start: 201111

REACTIONS (2)
  - Heart rate increased [Recovered/Resolved]
  - Inappropriate schedule of drug administration [Recovered/Resolved]
